FAERS Safety Report 6012523-2 (Version None)
Quarter: 2008Q4

REPORT INFORMATION
  Report Type: 
  Country: None (occurrence: None)
  Receive Date: 20081218
  Receipt Date: 20081203
  Transmission Date: 20090506
  Serious: No
  Sender: FDA-Public Use
  Company Number: US-B.I. PHARMACEUTICALS,INC./RIDGEFIELD-2008-BP-18118BP

PATIENT
  Sex: Female

DRUGS (7)
  1. ZANTAC 150 [Suspect]
     Indication: GASTROOESOPHAGEAL REFLUX DISEASE
     Dosage: 300MG
     Route: 048
     Dates: start: 20081101
  2. REMICADE [Concomitant]
     Indication: RHEUMATOID ARTHRITIS
  3. METHOTREXATE [Concomitant]
     Indication: RHEUMATOID ARTHRITIS
  4. CENTRUM SILVER [Concomitant]
  5. LISINOPRIL [Concomitant]
     Indication: HYPERTENSION
  6. GLUCOSAMINE CHONDROITIN [Concomitant]
  7. CALCIUM [Concomitant]

REACTIONS (1)
  - DIARRHOEA [None]
